FAERS Safety Report 6459099-3 (Version None)
Quarter: 2009Q4

REPORT INFORMATION
  Report Type: 
  Country: None (occurrence: None)
  Receive Date: 20091125
  Receipt Date: 20091125
  Transmission Date: 20100525
  Serious: Yes (Hospitalization)
  Sender: FDA-Public Use
  Company Number: None

PATIENT
  Age: 75 Year
  Sex: Female
  Weight: 73.9363 kg

DRUGS (15)
  1. BEVACIZUMAB 25MG/ML GENETECH, INC [Suspect]
     Indication: GLIOBLASTOMA MULTIFORME
     Dosage: 10MG/KG Q 2 WEEKS IV DRIP
     Route: 041
     Dates: start: 20090407, end: 20090917
  2. BEVACIZUMAB 25MG/ML GENETECH, INC [Suspect]
     Indication: GLIOBLASTOMA MULTIFORME
     Dosage: 10MG/KG Q 2 WEEKS IV DRIP
     Route: 041
     Dates: start: 20090407, end: 20091005
  3. NORVASC [Concomitant]
  4. ASPIRIN [Concomitant]
  5. TENORMIN [Concomitant]
  6. ATACAND [Concomitant]
  7. KEPPRA [Concomitant]
  8. LIPITOR [Concomitant]
  9. MULTI-VITAMIN [Concomitant]
  10. NEXIUM [Concomitant]
  11. SENOKOT [Concomitant]
  12. SODIUM CHLORIDE 0.9% [Concomitant]
  13. TYLENOL (CAPLET) [Concomitant]
  14. HYDROIURIL [Concomitant]
  15. ONDAESTRON [Concomitant]

REACTIONS (2)
  - CONVULSION [None]
  - MENTAL STATUS CHANGES [None]
